FAERS Safety Report 5311593-4 (Version None)
Quarter: 2007Q1

REPORT INFORMATION
  Report Type: 
  Country: None (occurrence: None)
  Receive Date: 20070201
  Receipt Date: 20061219
  Transmission Date: 20070707
  Serious: No
  Sender: FDA-Public Use
  Company Number: 259552

PATIENT
  Age: 75 Year
  Sex: Female

DRUGS (2)
  1. LEVEMIR [Suspect]
     Indication: DIABETES MELLITUS
     Dosage: SUBCUTANEOUS
     Route: 058
     Dates: start: 20061130
  2. ANACIN /00141001/ (ACETYLSALICYLIC ACID, CAFFEINE) [Concomitant]

REACTIONS (1)
  - CONTUSION [None]
